FAERS Safety Report 4897425-7 (Version None)
Quarter: 2006Q1

REPORT INFORMATION
  Report Type: 
  Country: None (occurrence: None)
  Receive Date: 20060130
  Receipt Date: 20060130
  Transmission Date: 20060701
  Serious: Yes (Hospitalization)
  Sender: FDA-Public Use
  Company Number: None

PATIENT
  Age: 87 Year
  Sex: Male
  Weight: 66.6788 kg

DRUGS (5)
  1. ZYVOX [Suspect]
     Indication: DIABETIC FOOT INFECTION
     Dosage: 600MG  BID  PO
     Route: 048
  2. VASOTEC [Concomitant]
  3. ALLOPURINOL [Concomitant]
  4. INSULIN [Concomitant]
  5. COREG [Concomitant]

REACTIONS (2)
  - ANAEMIA [None]
  - BONE MARROW FAILURE [None]
